FAERS Safety Report 11494180 (Version 1)
Quarter: 2015Q3

REPORT INFORMATION
  Report Type: Spontaneous
  Country: US (occurrence: US)
  Receive Date: 20150911
  Receipt Date: 20150911
  Transmission Date: 20151125
  Serious: No
  Sender: FDA-Public Use
  Company Number: US-ROCHE-1025932

PATIENT
  Sex: Female

DRUGS (3)
  1. PEGASYS [Suspect]
     Active Substance: PEGINTERFERON ALFA-2A
     Indication: HEPATITIS C
     Route: 058
     Dates: start: 20111007
  2. RIBAVIRIN. [Suspect]
     Active Substance: RIBAVIRIN
     Indication: HEPATITIS C
     Route: 048
     Dates: start: 20111007
  3. TELAPREVIR [Concomitant]
     Active Substance: TELAPREVIR

REACTIONS (5)
  - Rash [Unknown]
  - White blood cell count decreased [Unknown]
  - Anal pruritus [Unknown]
  - Anal haemorrhage [Unknown]
  - Red blood cell count decreased [Unknown]
